FAERS Safety Report 20884246 (Version 2)
Quarter: 2022Q3

REPORT INFORMATION
  Report Type: Spontaneous
  Country: CA (occurrence: CA)
  Receive Date: 20220527
  Receipt Date: 20220902
  Transmission Date: 20221026
  Serious: Yes (Hospitalization, Other)
  Sender: FDA-Public Use
  Company Number: CA-OTSUKA-2022_028877

PATIENT
  Sex: Male

DRUGS (9)
  1. ARIPIPRAZOLE [Suspect]
     Active Substance: ARIPIPRAZOLE
     Indication: Depression
     Dosage: UNK
     Route: 065
  2. ASENAPINE MALEATE [Suspect]
     Active Substance: ASENAPINE MALEATE
     Indication: Depression
     Dosage: 5 MG, BID
     Route: 065
  3. ASENAPINE MALEATE [Suspect]
     Active Substance: ASENAPINE MALEATE
     Dosage: 5 MG, QD (1EVERY 24 HOURS)
     Route: 065
  4. PAROXETINE HYDROCHLORIDE [Suspect]
     Active Substance: PAROXETINE HYDROCHLORIDE
     Indication: Depression
     Dosage: 10 MG, QD (1 EVERY 24 HOURS)
     Route: 065
  5. PAROXETINE HYDROCHLORIDE [Suspect]
     Active Substance: PAROXETINE HYDROCHLORIDE
     Dosage: 20 MG, QD (1 EVERY 24 HOURS)
     Route: 065
  6. PAROXETINE HYDROCHLORIDE [Suspect]
     Active Substance: PAROXETINE HYDROCHLORIDE
     Dosage: UNK
     Route: 065
  7. RISPERIDONE [Suspect]
     Active Substance: RISPERIDONE
     Indication: Depression
     Dosage: UNK
     Route: 065
  8. BENZTROPINE [Concomitant]
     Active Substance: BENZTROPINE
     Indication: Product used for unknown indication
     Dosage: 2 MG, QD(1 EVERY 1 DAYS)
     Route: 065
  9. MEDROXYPROGESTERONE [Concomitant]
     Active Substance: MEDROXYPROGESTERONE
     Indication: Product used for unknown indication
     Dosage: 200 MG
     Route: 030

REACTIONS (7)
  - Sedation complication [Recovering/Resolving]
  - Head titubation [Recovering/Resolving]
  - Toxicity to various agents [Unknown]
  - Serotonin syndrome [Unknown]
  - Cogwheel rigidity [Recovering/Resolving]
  - Extrapyramidal disorder [Recovering/Resolving]
  - Product use in unapproved indication [Unknown]
